FAERS Safety Report 21097766 (Version 3)
Quarter: 2022Q3

REPORT INFORMATION
  Report Type: Report from Study
  Country: US (occurrence: US)
  Receive Date: 20220719
  Receipt Date: 20220826
  Transmission Date: 20221027
  Serious: Yes (Hospitalization)
  Sender: FDA-Public Use
  Company Number: US-ABBVIE-22K-163-4456283-00

PATIENT
  Age: 52 Year
  Sex: Male
  Weight: 90.800 kg

DRUGS (13)
  1. SKYRIZI [Suspect]
     Active Substance: RISANKIZUMAB-RZAA
     Indication: Psoriasis
     Route: 058
     Dates: start: 20220701, end: 202207
  2. MODERNA COVID-19 VACCINE [Concomitant]
     Active Substance: ELASOMERAN
     Indication: COVID-19 immunisation
     Dosage: FIRST DOSE
     Route: 030
     Dates: start: 202103, end: 202103
  3. MODERNA COVID-19 VACCINE [Concomitant]
     Active Substance: ELASOMERAN
     Dosage: SECOND DOSE
     Route: 030
     Dates: start: 2021, end: 2021
  4. PRISTIQ EXTENDED-RELEASE [Concomitant]
     Active Substance: DESVENLAFAXINE SUCCINATE
     Indication: Antidepressant therapy
  5. SIMVASTATIN [Concomitant]
     Active Substance: SIMVASTATIN
     Indication: Blood cholesterol
  6. METFORMIN [Concomitant]
     Active Substance: METFORMIN HYDROCHLORIDE
     Indication: Diabetes mellitus
  7. XHANCE [Concomitant]
     Active Substance: FLUTICASONE PROPIONATE
     Indication: Hypersensitivity
  8. LOSARTAN [Concomitant]
     Active Substance: LOSARTAN
     Indication: Hypertension
  9. BREO ELLIPTA [Concomitant]
     Active Substance: FLUTICASONE FUROATE\VILANTEROL TRIFENATATE
     Indication: Asthma
  10. AMLODIPINE [Concomitant]
     Active Substance: AMLODIPINE BESYLATE
     Indication: Hypertension
  11. ADDERALL [Concomitant]
     Active Substance: AMPHETAMINE ASPARTATE\AMPHETAMINE SULFATE\DEXTROAMPHETAMINE SACCHARATE\DEXTROAMPHETAMINE SULFATE
     Indication: Attention deficit hyperactivity disorder
  12. OMEPRAZOLE [Concomitant]
     Active Substance: OMEPRAZOLE
     Indication: Gastrooesophageal reflux disease
  13. AMITRIPTYLINE [Concomitant]
     Active Substance: AMITRIPTYLINE
     Indication: Sleep disorder

REACTIONS (15)
  - Pancreatitis [Recovering/Resolving]
  - Throat irritation [Unknown]
  - Sudden onset of sleep [Unknown]
  - Hyperhidrosis [Not Recovered/Not Resolved]
  - Hypersomnia [Unknown]
  - Pallor [Unknown]
  - Paraesthesia [Unknown]
  - Feeling abnormal [Not Recovered/Not Resolved]
  - Malaise [Recovering/Resolving]
  - Hypophagia [Not Recovered/Not Resolved]
  - Pancreatic enzymes increased [Not Recovered/Not Resolved]
  - Fatigue [Not Recovered/Not Resolved]
  - Gastrointestinal disorder [Recovering/Resolving]
  - Eosinophil count increased [Recovering/Resolving]
  - Drug hypersensitivity [Recovering/Resolving]

NARRATIVE: CASE EVENT DATE: 20220701
